FAERS Safety Report 13608624 (Version 1)
Quarter: 2017Q2

REPORT INFORMATION
  Report Type: Spontaneous
  Country: US (occurrence: US)
  Receive Date: 20170602
  Receipt Date: 20170602
  Transmission Date: 20170830
  Serious: No
  Sender: FDA-Public Use
  Company Number: US-PFIZER INC-3131374

PATIENT
  Age: 44 Year
  Sex: Female
  Weight: 56.82 kg

DRUGS (2)
  1. EPINEPHRINE/LIDOCAINE HYDROCHLORIDE [Suspect]
     Active Substance: EPINEPHRINE\LIDOCAINE HYDROCHLORIDE
     Dosage: 20 CC PLUS
     Route: 005
     Dates: start: 20151229, end: 20151229
  2. LUGOL [Concomitant]
     Active Substance: IODINE\POTASSIUM IODIDE
     Indication: PRODUCT USED FOR UNKNOWN INDICATION

REACTIONS (3)
  - Drug ineffective [Recovered/Resolved]
  - Product quality issue [None]
  - Pain [None]

NARRATIVE: CASE EVENT DATE: 20151229
